FAERS Safety Report 13398557 (Version 2)
Quarter: 2017Q3

REPORT INFORMATION
  Report Type: Spontaneous
  Country: US (occurrence: US)
  Receive Date: 20170403
  Receipt Date: 20170804
  Transmission Date: 20171127
  Serious: No
  Sender: FDA-Public Use
  Company Number: GXBR2017US000830

PATIENT
  Age: 48 Year
  Sex: Female

DRUGS (1)
  1. BIMATOPROST. [Suspect]
     Active Substance: BIMATOPROST
     Indication: EYELASH HYPERPIGMENTATION
     Dosage: UNK
     Route: 065
     Dates: start: 20170126, end: 20170214

REACTIONS (2)
  - Eyelash discolouration [Unknown]
  - Drug ineffective [Not Recovered/Not Resolved]
